FAERS Safety Report 20884495 (Version 1)
Quarter: 2022Q2

REPORT INFORMATION
  Report Type: Spontaneous
  Country: US (occurrence: US)
  Receive Date: 20220527
  Receipt Date: 20220527
  Transmission Date: 20220721
  Serious: No
  Sender: FDA-Public Use
  Company Number: US-BRISTOL-MYERS SQUIBB COMPANY-2022-047767

PATIENT
  Age: 79 Year
  Sex: Male

DRUGS (5)
  1. REVLIMID [Suspect]
     Active Substance: LENALIDOMIDE
     Indication: Plasma cell myeloma
     Dosage: TAKE 1 CAPSULE BY MOUTH EVERY DAY FOR 21 DAYS AND 7 DAYS OFF
     Route: 048
     Dates: start: 20220428
  2. BUSPIRONE [Concomitant]
     Active Substance: BUSPIRONE HYDROCHLORIDE
     Indication: Plasma cell myeloma
  3. LYRICA [Concomitant]
     Active Substance: PREGABALIN
     Indication: Plasma cell myeloma
  4. MELATONIN [Concomitant]
     Active Substance: MELATONIN
     Indication: Plasma cell myeloma
  5. VITAMINS NOS [Concomitant]
     Active Substance: VITAMINS
     Indication: Plasma cell myeloma

REACTIONS (3)
  - Diarrhoea [Unknown]
  - Fatigue [Unknown]
  - Dizziness [Unknown]

NARRATIVE: CASE EVENT DATE: 20220525
